FAERS Safety Report 15038163 (Version 1)
Quarter: 2018Q2

REPORT INFORMATION
  Report Type: Spontaneous
  Country: DE (occurrence: DE)
  Receive Date: 20180620
  Receipt Date: 20180620
  Transmission Date: 20180711
  Serious: Yes (Life-Threatening, Hospitalization, Other)
  Sender: FDA-Public Use
  Company Number: DE-BAYER-2018-112594

PATIENT
  Sex: Male

DRUGS (1)
  1. XOFIGO [Suspect]
     Active Substance: RADIUM RA-223 DICHLORIDE
     Indication: PROSTATE CANCER METASTATIC
     Route: 042

REACTIONS (5)
  - Ileus [Not Recovered/Not Resolved]
  - Subileus [Not Recovered/Not Resolved]
  - Vomiting [Unknown]
  - Subileus [Not Recovered/Not Resolved]
  - Enterostomy [Not Recovered/Not Resolved]

NARRATIVE: CASE EVENT DATE: 20180519
